FAERS Safety Report 17925848 (Version 3)
Quarter: 2021Q3

REPORT INFORMATION
  Report Type: Spontaneous
  Country: US (occurrence: US)
  Receive Date: 20200622
  Receipt Date: 20210921
  Transmission Date: 20211014
  Serious: Yes (Other)
  Sender: FDA-Public Use
  Company Number: US-PURDUE-USA-2020-0153210

PATIENT
  Sex: Male

DRUGS (1)
  1. MORPHINE SULFATE (SIMILAR TO NDA 19?516) [Suspect]
     Active Substance: MORPHINE SULFATE
     Indication: PRODUCT USED FOR UNKNOWN INDICATION
     Dosage: 60 MG, DAILY
     Route: 048
     Dates: start: 2008

REACTIONS (13)
  - Mental disability [Unknown]
  - Discomfort [Unknown]
  - Fatigue [Unknown]
  - Sleep disorder [Unknown]
  - Drug dependence [Unknown]
  - Anxiety [Unknown]
  - Abdominal discomfort [Unknown]
  - Pain [Unknown]
  - Panic attack [Unknown]
  - Cardiac arrest [Unknown]
  - Overdose [Unknown]
  - Speech disorder [Unknown]
  - Sexual dysfunction [Unknown]

NARRATIVE: CASE EVENT DATE: 200801
